FAERS Safety Report 15505877 (Version 18)
Quarter: 2021Q2

REPORT INFORMATION
  Report Type: Spontaneous
  Country: US (occurrence: US)
  Receive Date: 20181016
  Receipt Date: 20210618
  Transmission Date: 20210716
  Serious: No
  Sender: FDA-Public Use
  Company Number: US-PFIZER INC-2018414846

PATIENT
  Age: 69 Year
  Sex: Female
  Weight: 61.69 kg

DRUGS (19)
  1. METOPROLOL. [Concomitant]
     Active Substance: METOPROLOL
     Dosage: 25 MG HALF IN AM/ HALF IN PM)
     Dates: start: 2005
  2. EQUATE ALLERGY RELIEF [LORATADINE] [Concomitant]
     Indication: SINUS DISORDER
     Dosage: 10 MG, UNK
  3. BRILINTA [Concomitant]
     Active Substance: TICAGRELOR
     Dosage: 60MGX2
     Dates: start: 2018
  4. PREMARIN [Suspect]
     Active Substance: ESTROGENS, CONJUGATED
     Indication: OVARIAN FAILURE POSTOPERATIVE
  5. EZETIMIBE. [Concomitant]
     Active Substance: EZETIMIBE
     Dosage: 10 MG, 1X/DAY (BED TIME))
  6. CARTIA XT [Concomitant]
     Active Substance: DILTIAZEM HYDROCHLORIDE
     Indication: HYPERTENSION
     Dosage: 120/24 HOUR, 1X/DAY
     Dates: start: 2014
  7. PREMARIN [Suspect]
     Active Substance: ESTROGENS, CONJUGATED
     Indication: VULVOVAGINAL DRYNESS
     Dosage: 0.625 MG, 1X/DAY
     Route: 048
  8. PREMARIN [Suspect]
     Active Substance: ESTROGENS, CONJUGATED
     Indication: MENOPAUSAL SYMPTOMS
  9. CARTIA XT [Concomitant]
     Active Substance: DILTIAZEM HYDROCHLORIDE
     Indication: CHEST PAIN
  10. PREMARIN [Suspect]
     Active Substance: ESTROGENS, CONJUGATED
     Indication: HOT FLUSH
     Dosage: 0.625 MG, 1X/DAY
     Route: 048
     Dates: start: 1977
  11. PREMARIN [Suspect]
     Active Substance: ESTROGENS, CONJUGATED
     Indication: HORMONE REPLACEMENT THERAPY
  12. PREMARIN [Suspect]
     Active Substance: ESTROGENS, CONJUGATED
     Indication: MOOD ALTERED
  13. LYRICA [Concomitant]
     Active Substance: PREGABALIN
     Dosage: UNK
     Dates: start: 2002
  14. ISOSORB [ISOSORBIDE DINITRATE] [Concomitant]
     Indication: ANGINA PECTORIS
     Dosage: UNK
     Dates: start: 2018
  15. PREMARIN [Suspect]
     Active Substance: ESTROGENS, CONJUGATED
     Indication: HYPERHIDROSIS
     Dosage: 0.625 MG, 1X/DAY
     Route: 048
     Dates: start: 201912
  16. PREMARIN [Suspect]
     Active Substance: ESTROGENS, CONJUGATED
     Indication: NERVOUSNESS
  17. LEVOTHYROXINE. [Concomitant]
     Active Substance: LEVOTHYROXINE
     Dosage: 100 UG, UNK
     Dates: start: 2010
  18. FENOFIBRATE. [Concomitant]
     Active Substance: FENOFIBRATE
     Dosage: 48 MG, UNK
  19. ZETIA [Concomitant]
     Active Substance: EZETIMIBE
     Dosage: 10 MG, UNK
     Dates: start: 2018

REACTIONS (7)
  - Weight increased [Unknown]
  - Expired product administered [Unknown]
  - Anxiety [Unknown]
  - Insomnia [Not Recovered/Not Resolved]
  - Hot flush [Not Recovered/Not Resolved]
  - Therapeutic response unexpected [Unknown]
  - Malaise [Unknown]

NARRATIVE: CASE EVENT DATE: 201811
